FAERS Safety Report 11156393 (Version 2)
Quarter: 2015Q2

REPORT INFORMATION
  Report Type: Report from Study
  Country: JP (occurrence: JP)
  Receive Date: 20150602
  Receipt Date: 20150630
  Transmission Date: 20150821
  Serious: Yes (Other)
  Sender: FDA-Public Use
  Company Number: PHHY2013JP061171

PATIENT
  Age: 52 Year
  Sex: Female

DRUGS (38)
  1. CLOZARIL [Suspect]
     Active Substance: CLOZAPINE
     Dosage: 75 MG, QD
     Route: 048
     Dates: start: 20121017, end: 20121018
  2. CLOZARIL [Suspect]
     Active Substance: CLOZAPINE
     Dosage: 325 MG, QD
     Route: 048
     Dates: start: 20130115, end: 20130128
  3. CLOZARIL [Suspect]
     Active Substance: CLOZAPINE
     Dosage: 500 MG, QD
     Route: 048
     Dates: start: 20130226, end: 20130304
  4. CLOZARIL [Suspect]
     Active Substance: CLOZAPINE
     Dosage: 550 MG, QD
     Route: 048
     Dates: start: 20130409, end: 20130708
  5. SEROQUEL [Concomitant]
     Active Substance: QUETIAPINE FUMARATE
     Dosage: 350 MG, QD
     Route: 048
     Dates: start: 20121027, end: 20121029
  6. SEROQUEL [Concomitant]
     Active Substance: QUETIAPINE FUMARATE
     Dosage: 200 MG, QD
     Route: 048
     Dates: start: 20121030, end: 20121101
  7. AKIRIDEN [Concomitant]
     Active Substance: BIPERIDEN
     Indication: SCHIZOPHRENIA, PARANOID TYPE
     Dosage: 1 MG, QD
     Route: 048
     Dates: end: 20130217
  8. MAGNESIUM OXIDE. [Concomitant]
     Active Substance: MAGNESIUM OXIDE
     Indication: SCHIZOPHRENIA, PARANOID TYPE
     Dosage: 2500 MG, QD
     Route: 048
     Dates: start: 20130410, end: 20130908
  9. MAGNESIUM OXIDE. [Concomitant]
     Active Substance: MAGNESIUM OXIDE
     Dosage: 2000 MG, QD
     Route: 048
     Dates: start: 20130909
  10. BENZALIN [Concomitant]
     Active Substance: NITRAZEPAM
     Indication: SCHIZOPHRENIA, PARANOID TYPE
     Dosage: 10 MG, QD
     Route: 048
     Dates: start: 20130410
  11. CLOZARIL [Suspect]
     Active Substance: CLOZAPINE
     Dosage: 175 MG, QD
     Route: 048
     Dates: start: 20121027, end: 20121029
  12. CLOZARIL [Suspect]
     Active Substance: CLOZAPINE
     Dosage: 300 MG, QD
     Route: 048
     Dates: start: 20121114, end: 20121120
  13. CLOZARIL [Suspect]
     Active Substance: CLOZAPINE
     Dosage: 400 MG, QD
     Route: 048
     Dates: start: 20121128, end: 20121204
  14. CLOZARIL [Suspect]
     Active Substance: CLOZAPINE
     Dosage: 400 MG, QD
     Route: 048
     Dates: start: 20130205, end: 20130211
  15. CLOZARIL [Suspect]
     Active Substance: CLOZAPINE
     Dosage: 100 MG, QD
     Route: 048
     Dates: start: 20121019, end: 20121020
  16. CLOZARIL [Suspect]
     Active Substance: CLOZAPINE
     Dosage: 200 MG, QD
     Route: 048
     Dates: start: 20121030, end: 20121106
  17. SEROQUEL [Concomitant]
     Active Substance: QUETIAPINE FUMARATE
     Dosage: 500 MG, QD
     Route: 048
     Dates: start: 20121023, end: 20121026
  18. SILECE [Concomitant]
     Active Substance: FLUNITRAZEPAM
     Indication: SCHIZOPHRENIA, PARANOID TYPE
     Dosage: 2 MG, QD
     Route: 048
     Dates: start: 20121130, end: 20130311
  19. CLOZARIL [Suspect]
     Active Substance: CLOZAPINE
     Dosage: 125 MG, QD
     Route: 048
     Dates: start: 20121021, end: 20121023
  20. CLOZARIL [Suspect]
     Active Substance: CLOZAPINE
     Dosage: 450 MG, QD
     Route: 048
     Dates: start: 20130212, end: 20130225
  21. CLOZARIL [Suspect]
     Active Substance: CLOZAPINE
     Dosage: 600 MG, QD
     Route: 048
     Dates: start: 20130709, end: 20130902
  22. CLOZARIL [Suspect]
     Active Substance: CLOZAPINE
     Dosage: 500 MG, QD
     Route: 048
     Dates: start: 20130903
  23. SEROQUEL [Concomitant]
     Active Substance: QUETIAPINE FUMARATE
     Indication: SCHIZOPHRENIA, PARANOID TYPE
     Dosage: 750 MG, QD
     Route: 048
     Dates: start: 20121010, end: 20121022
  24. WINTERMIN [Concomitant]
     Active Substance: PROMAZINE
     Indication: SCHIZOPHRENIA, PARANOID TYPE
     Dosage: 25 MG, QD
     Route: 065
     Dates: start: 20130909
  25. CLOZARIL [Suspect]
     Active Substance: CLOZAPINE
     Indication: SCHIZOPHRENIA, PARANOID TYPE
     Dosage: 12.5 MG, QD
     Route: 048
     Dates: start: 20121010, end: 20121010
  26. CLOZARIL [Suspect]
     Active Substance: CLOZAPINE
     Dosage: 150 MG, QD
     Route: 048
     Dates: start: 20121024, end: 20121026
  27. CLOZARIL [Suspect]
     Active Substance: CLOZAPINE
     Dosage: 300 MG, QD
     Route: 048
     Dates: start: 20121226, end: 20130114
  28. CLOZARIL [Suspect]
     Active Substance: CLOZAPINE
     Dosage: 525 MG, QD
     Route: 048
     Dates: start: 20130305, end: 20130408
  29. AKIRIDEN [Concomitant]
     Active Substance: BIPERIDEN
     Dosage: 3 MG, QD
     Route: 048
     Dates: start: 20130218
  30. CONTOMIN//CHLORPROMAZINE HIBENZATE [Concomitant]
     Indication: SCHIZOPHRENIA, PARANOID TYPE
     Dosage: 25 MG, QD
     Route: 065
     Dates: start: 20130814, end: 20130908
  31. CLOZARIL [Suspect]
     Active Substance: CLOZAPINE
     Dosage: 25 MG, QD
     Route: 048
     Dates: start: 20121011, end: 20121013
  32. CLOZARIL [Suspect]
     Active Substance: CLOZAPINE
     Dosage: 250 MG, QD
     Route: 048
     Dates: start: 20121107, end: 20121113
  33. CLOZARIL [Suspect]
     Active Substance: CLOZAPINE
     Dosage: 350 MG, QD
     Route: 048
     Dates: start: 20121121, end: 20121127
  34. CLOZARIL [Suspect]
     Active Substance: CLOZAPINE
     Dosage: 450 MG, QD
     Route: 048
     Dates: start: 20121205, end: 20121225
  35. CLOZARIL [Suspect]
     Active Substance: CLOZAPINE
     Dosage: 350 MG, QD
     Route: 048
     Dates: start: 20130129, end: 20130204
  36. SEROQUEL [Concomitant]
     Active Substance: QUETIAPINE FUMARATE
     Dosage: 50 MG, QD
     Route: 048
     Dates: start: 20121105, end: 20121107
  37. CLOZARIL [Suspect]
     Active Substance: CLOZAPINE
     Dosage: 50 MG, QD
     Route: 048
     Dates: start: 20121014, end: 20121016
  38. SEROQUEL [Concomitant]
     Active Substance: QUETIAPINE FUMARATE
     Dosage: 100 MG, QD
     Route: 048
     Dates: start: 20121102, end: 20121104

REACTIONS (9)
  - Pyrexia [Unknown]
  - Aspiration [Recovered/Resolved]
  - Spinal column injury [Unknown]
  - Glucose tolerance impaired [Recovering/Resolving]
  - Bronchitis [Recovered/Resolved]
  - Seizure [Recovered/Resolved]
  - Hyperprolactinaemia [Recovering/Resolving]
  - Salivary hypersecretion [Not Recovered/Not Resolved]
  - Bradykinesia [Not Recovered/Not Resolved]

NARRATIVE: CASE EVENT DATE: 20121225
